FAERS Safety Report 5719628-1 (Version None)
Quarter: 2008Q2

REPORT INFORMATION
  Report Type: 
  Country: None (occurrence: None)
  Receive Date: 20080428
  Receipt Date: 20080417
  Transmission Date: 20081010
  Serious: Yes (Other)
  Sender: FDA-Public Use
  Company Number: US-JNJFOC-20080405309

PATIENT
  Age: 49 Year
  Sex: Male

DRUGS (7)
  1. PREZISTA [Suspect]
     Indication: HIV INFECTION
     Route: 065
     Dates: start: 20071114
  2. INTELENCE [Suspect]
     Indication: HIV INFECTION
     Route: 065
  3. RITONAVIR [Suspect]
     Indication: HIV INFECTION
     Route: 065
  4. RALTEGRAVIR [Concomitant]
     Indication: HIV INFECTION
  5. TRUVADA [Concomitant]
     Indication: HIV INFECTION
  6. ONLANZAPINE [Concomitant]
  7. BENZOTROPINE [Concomitant]

REACTIONS (1)
  - PARKINSONISM [None]
